FAERS Safety Report 9912470 (Version 1)
Quarter: 2014Q1

REPORT INFORMATION
  Report Type: Report from Study
  Country: US (occurrence: US)
  Receive Date: 20140220
  Receipt Date: 20140220
  Transmission Date: 20141002
  Serious: Yes (Hospitalization, Other)
  Sender: FDA-Public Use
  Company Number: US-ALEXION PHARMACEUTICALS INC.-A201400525

PATIENT
  Age: 20 Year
  Sex: Female

DRUGS (4)
  1. SOLIRIS [Suspect]
     Indication: PAROXYSMAL NOCTURNAL HAEMOGLOBINURIA
     Dosage: 900 MG, Q2W
     Route: 042
     Dates: start: 20100430
  2. FOLIC ACID [Concomitant]
     Dosage: 1 MG, QD
  3. LOVENOX [Concomitant]
     Dosage: 60 MG, QD
  4. MULTIVITAMIN                       /00097801/ [Concomitant]
     Dosage: 1 TAB, QD

REACTIONS (3)
  - Transfusion [Unknown]
  - Drug hypersensitivity [Unknown]
  - Influenza [Unknown]
